FAERS Safety Report 13363102 (Version 2)
Quarter: 2017Q1

REPORT INFORMATION
  Report Type: Spontaneous
  Country: US (occurrence: US)
  Receive Date: 20170323
  Receipt Date: 20170324
  Transmission Date: 20170429
  Serious: Yes (Hospitalization, Other)
  Sender: FDA-Public Use
  Company Number: US-PFIZER INC-2017110166

PATIENT
  Age: 30 Year
  Sex: Male

DRUGS (1)
  1. DEXTROMETHORPHAN HYDROBROMIDE. [Suspect]
     Active Substance: DEXTROMETHORPHAN HYDROBROMIDE
     Dosage: ESTIMATED 2832 MILLIGRAMS OF DXM (APPROXIMATELY 944 MILLILITERS OF COUGH SYRUP)
     Route: 048

REACTIONS (3)
  - Drug abuse [Unknown]
  - Psychotic disorder [Unknown]
  - Agitation [Unknown]
